FAERS Safety Report 5919560-4 (Version None)
Quarter: 2008Q4

REPORT INFORMATION
  Report Type: 
  Country: None (occurrence: None)
  Receive Date: 20081015
  Receipt Date: 20071109
  Transmission Date: 20090506
  Serious: No
  Sender: FDA-Public Use
  Company Number: US-BRISTOL-MYERS SQUIBB COMPANY-13979497

PATIENT

DRUGS (1)
  1. KENALOG-40 [Suspect]
     Route: 008

REACTIONS (2)
  - FACIAL PAIN [None]
  - SWELLING FACE [None]
